FAERS Safety Report 13591560 (Version 1)
Quarter: 2017Q2

REPORT INFORMATION
  Report Type: Spontaneous
  Country: US (occurrence: US)
  Receive Date: 20170530
  Receipt Date: 20170530
  Transmission Date: 20170830
  Serious: No
  Sender: FDA-Public Use
  Company Number: None

PATIENT
  Age: 62 Year
  Sex: Female

DRUGS (1)
  1. IBRANCE [Suspect]
     Active Substance: PALBOCICLIB
     Indication: BREAST CANCER METASTATIC
     Dosage: 100MG QD FOR 21 DAYS THEN OFF FOR 7 DAYS ORAL
     Route: 048
     Dates: start: 20170315

REACTIONS (2)
  - Hypoaesthesia [None]
  - Exposure via skin contact [None]

NARRATIVE: CASE EVENT DATE: 20170517
